FAERS Safety Report 7615599-1 (Version None)
Quarter: 2011Q3

REPORT INFORMATION
  Report Type: 
  Country: None (occurrence: None)
  Receive Date: 20110708
  Receipt Date: 20110701
  Transmission Date: 20111222
  Serious: Yes (Other)
  Sender: FDA-Public Use
  Company Number: 1000020635

PATIENT
  Age: 56 Year
  Sex: Female
  Weight: 61.69 kg

DRUGS (8)
  1. SAVELLA [Suspect]
     Indication: FIBROMYALGIA
     Dosage: 100 MG (50 MG, 2 IN 1 D)
     Dates: end: 20110427
  2. ESTRADIOL [Concomitant]
  3. NITROFURANTOIN (NITROFURANTOIN) (NITROFURANTOIN) [Concomitant]
  4. ANAPROX (NAPROXEN SODIUM) (NAPROXEN SODIUM) [Concomitant]
  5. ACYCLOVIR (ACYCLOVIR)(ACYCLOVIR) [Concomitant]
  6. SAVELLA [Suspect]
     Indication: FIBROMYALGIA
     Dosage: 12.5 MG (12.5 MG, 1 IN 1 D),  25 MG (12.5 MG,2 IN 1 D), 50 MG (25 MG,2 IN 1 D)
  7. FISH OIL (FISH OIL)(FISH OIL) [Concomitant]
  8. BIOTIN (BIOTIN) (BIOTIN) [Concomitant]

REACTIONS (1)
  - CUTANEOUS LUPUS ERYTHEMATOSUS [None]
